FAERS Safety Report 9672193 (Version 1)
Quarter: 2013Q4

REPORT INFORMATION
  Report Type: Spontaneous
  Country: PL (occurrence: PL)
  Receive Date: 20131106
  Receipt Date: 20131106
  Transmission Date: 20140711
  Serious: Yes (Disabling, Other)
  Sender: FDA-Public Use
  Company Number: PL-BRISTOL-MYERS SQUIBB COMPANY-19690155

PATIENT
  Age: 52 Year
  Sex: Male

DRUGS (7)
  1. ABILIFY TABS [Suspect]
     Indication: SCHIZOPHRENIA
     Route: 048
     Dates: start: 20130519
  2. FLUANXOL DEPOT [Suspect]
     Indication: SCHIZOPHRENIA
     Dosage: SOLUTION, 1.5MG,AMP,0.02 EVERY 2WKS,LAST DOSE:20MAY13
     Route: 030
     Dates: start: 2011
  3. CIPROFLOXACIN [Suspect]
     Indication: PROSTATIC SPECIFIC ANTIGEN
     Dosage: 1DF=1 UNIT NOS
     Route: 048
     Dates: start: 20130529, end: 20130607
  4. CIPROFLOXACIN [Suspect]
     Indication: BENIGN PROSTATIC HYPERPLASIA
     Dosage: 1DF=1 UNIT NOS
     Route: 048
     Dates: start: 20130529, end: 20130607
  5. PYGEUM AFRICANUM [Concomitant]
     Indication: BENIGN PROSTATIC HYPERPLASIA
     Route: 048
     Dates: start: 20130519
  6. PYGEUM AFRICANUM [Concomitant]
     Indication: PROSTATIC SPECIFIC ANTIGEN
     Route: 048
     Dates: start: 20130519
  7. OMEGA-3 TRIGLYCERIDES [Concomitant]
     Indication: HYPERCHOLESTEROLAEMIA
     Route: 048
     Dates: start: 20130519

REACTIONS (4)
  - Insomnia [Not Recovered/Not Resolved]
  - Premature ejaculation [Not Recovered/Not Resolved]
  - Erectile dysfunction [Not Recovered/Not Resolved]
  - Myalgia [Not Recovered/Not Resolved]
